FAERS Safety Report 24224321 (Version 1)
Quarter: 2024Q3

REPORT INFORMATION
  Report Type: Spontaneous
  Country: US (occurrence: None)
  Receive Date: 20240818
  Receipt Date: 20240818
  Transmission Date: 20241017
  Serious: No
  Sender: Public
  Company Number: None

PATIENT
  Age: 62 Year
  Sex: Female
  Weight: 45 kg

DRUGS (5)
  1. NEXLIZET [Suspect]
     Active Substance: BEMPEDOIC ACID\EZETIMIBE
     Indication: Blood cholesterol increased
     Dosage: 1 TABLET DAILY ORAL M?
     Route: 048
  2. LOSARTIN [Concomitant]
  3. GARLIC [Concomitant]
     Active Substance: GARLIC
  4. hair skin and nails [Concomitant]
  5. COENZYME Q10 [Concomitant]
     Active Substance: DIETARY SUPPLEMENT\UBIDECARENONE

REACTIONS (2)
  - Tendon pain [None]
  - Vertigo [None]

NARRATIVE: CASE EVENT DATE: 20240607
